FAERS Safety Report 10235192 (Version 1)
Quarter: 2014Q2

REPORT INFORMATION
  Report Type: Spontaneous
  Country: US (occurrence: US)
  Receive Date: 20140613
  Receipt Date: 20140613
  Transmission Date: 20141212
  Serious: No
  Sender: FDA-Public Use
  Company Number: US-009507513-1406USA004599

PATIENT
  Sex: Female

DRUGS (3)
  1. COZAAR [Suspect]
     Indication: HYPERTENSION
     Dosage: DOSE/FREQUENCY: 50MG / ONCE DAILY
     Route: 048
     Dates: start: 20131221
  2. XANAX [Concomitant]
  3. PREMARIN [Concomitant]

REACTIONS (1)
  - Discomfort [Not Recovered/Not Resolved]
